FAERS Safety Report 9662610 (Version 2)
Quarter: 2013Q4

REPORT INFORMATION
  Report Type: Spontaneous
  Country: US (occurrence: US)
  Receive Date: 20131031
  Receipt Date: 20131031
  Transmission Date: 20140711
  Serious: No
  Sender: FDA-Public Use
  Company Number: US-PURDUE-USA-2010-0051470

PATIENT
  Sex: Male

DRUGS (3)
  1. OXYCONTIN (NDA 22-272) [Suspect]
     Indication: BACK PAIN
     Dosage: 30 MG, Q6H
     Route: 048
     Dates: start: 20100928, end: 20101011
  2. OXYCONTIN (NDA 22-272) [Suspect]
     Dosage: 120 MG, DAILY
  3. PERCOCET                           /00446701/ [Concomitant]
     Indication: BREAKTHROUGH PAIN
     Dosage: UNK

REACTIONS (3)
  - Wrong technique in drug usage process [Recovered/Resolved]
  - Drug ineffective [Recovered/Resolved]
  - Inadequate analgesia [Recovered/Resolved]
